FAERS Safety Report 8456574-7 (Version None)
Quarter: 2012Q2

REPORT INFORMATION
  Report Type: 
  Country: None (occurrence: None)
  Receive Date: 20120621
  Receipt Date: 20120615
  Transmission Date: 20120825
  Serious: Yes (Other)
  Sender: FDA-Public Use
  Company Number: US-GLAXOSMITHKLINE-A0981390A

PATIENT
  Sex: Male

DRUGS (1)
  1. ABREVA [Suspect]
     Indication: ORAL HERPES
     Route: 061

REACTIONS (5)
  - NEOPLASM MALIGNANT [None]
  - LYMPHADENOPATHY [None]
  - SUBMANDIBULAR MASS [None]
  - LOCAL SWELLING [None]
  - ACCIDENTAL EXPOSURE [None]
